FAERS Safety Report 6568187-2 (Version None)
Quarter: 2010Q1

REPORT INFORMATION
  Report Type: 
  Country: None (occurrence: None)
  Receive Date: 20100203
  Receipt Date: 20100129
  Transmission Date: 20100710
  Serious: Yes (Hospitalization)
  Sender: FDA-Public Use
  Company Number: AU-ROCHE-675509

PATIENT
  Sex: Female
  Weight: 52.3 kg

DRUGS (2)
  1. CAPECITABINE [Suspect]
     Indication: RECTAL CANCER
     Dosage: CYCLE:  01.  SCHEDUE:  825 MG/M2 PO BID, D1-33 W/O WEEKEND
     Route: 048
     Dates: start: 20091214
  2. OXALIPLATIN [Suspect]
     Indication: RECTAL CANCER
     Dosage: CYCLE 1.  SCHEDULE:  50 MG/M2 IV ON D1, 8, 15, 22 AND 25.
     Route: 042
     Dates: start: 20091214

REACTIONS (2)
  - CONSTIPATION [None]
  - GASTROINTESTINAL PAIN [None]
